FAERS Safety Report 21577343 (Version 2)
Quarter: 2022Q4

REPORT INFORMATION
  Report Type: Report from Study
  Country: US (occurrence: US)
  Receive Date: 20221110
  Receipt Date: 20221115
  Transmission Date: 20230113
  Serious: No
  Sender: FDA-Public Use
  Company Number: US-002147023-NVSC2022US252502

PATIENT
  Age: 80 Year
  Sex: Female

DRUGS (1)
  1. ENTRESTO [Suspect]
     Active Substance: SACUBITRIL\VALSARTAN
     Indication: Product used for unknown indication
     Dosage: 1 DOSAGE FORM, BID (49/51 MG)
     Route: 048
     Dates: start: 20221012

REACTIONS (8)
  - Influenza like illness [Unknown]
  - Cough [Unknown]
  - Nasopharyngitis [Unknown]
  - Pain [Unknown]
  - Asthenia [Unknown]
  - Eye pruritus [Not Recovered/Not Resolved]
  - Diarrhoea [Unknown]
  - Rash [Not Recovered/Not Resolved]

NARRATIVE: CASE EVENT DATE: 20221024
